FAERS Safety Report 9535373 (Version 2)
Quarter: 2013Q4

REPORT INFORMATION
  Report Type: Spontaneous
  Country: DE (occurrence: DE)
  Receive Date: 20130918
  Receipt Date: 20131024
  Transmission Date: 20140711
  Serious: Yes (Disabling)
  Sender: FDA-Public Use
  Company Number: DE-B.I. PHARMACEUTICALS,INC./RIDGEFIELD-2013-BI-29122BY

PATIENT
  Sex: Female

DRUGS (4)
  1. TELMISARTAN [Suspect]
     Indication: HYPERTENSION
     Dosage: 40 MG
     Route: 048
     Dates: start: 2010
  2. DEKRISTOL (COLECALCIFEROL) [Suspect]
     Indication: VITAMIN D DEFICIENCY
     Route: 048
     Dates: start: 2010
  3. XELEVIA (SITAGLIPTIN PHOSPHATE) [Suspect]
     Indication: DIABETES MELLITUS
     Route: 048
     Dates: start: 2010, end: 2013
  4. XELEVIA (SITAGLIPTIN PHOSPHATE) [Suspect]
     Route: 065

REACTIONS (4)
  - Tendon rupture [Unknown]
  - Tendon rupture [Unknown]
  - Tendon rupture [Unknown]
  - Tendon rupture [Unknown]
